FAERS Safety Report 7251701-1 (Version None)
Quarter: 2011Q1

REPORT INFORMATION
  Report Type: 
  Country: None (occurrence: None)
  Receive Date: 20110128
  Receipt Date: 20110117
  Transmission Date: 20110831
  Serious: Yes (Hospitalization)
  Sender: FDA-Public Use
  Company Number: IT-ELI_LILLY_AND_COMPANY-IT200911003385

PATIENT
  Sex: Female

DRUGS (3)
  1. CYMBALTA [Suspect]
     Dosage: 600 MG, DAILY (1/D)
     Route: 048
     Dates: start: 20090614, end: 20090614
  2. XANAX [Concomitant]
     Dosage: 0.25 MG, UNKNOWN
  3. ASPIRIN [Concomitant]

REACTIONS (5)
  - SUICIDAL IDEATION [None]
  - SPEECH DISORDER [None]
  - INTENTIONAL OVERDOSE [None]
  - SUICIDE ATTEMPT [None]
  - SOPOR [None]
